FAERS Safety Report 15500462 (Version 44)
Quarter: 2020Q1

REPORT INFORMATION
  Report Type: Spontaneous
  Country: CA (occurrence: CA)
  Receive Date: 20181015
  Receipt Date: 20200325
  Transmission Date: 20200409
  Serious: Yes (Other)
  Sender: FDA-Public Use
  Company Number: CA-PFIZER INC-2018343713

PATIENT
  Age: 42 Year
  Sex: Male
  Weight: 77.5 kg

DRUGS (61)
  1. ELELYSO [Suspect]
     Active Substance: TALIGLUCERASE ALFA
     Dosage: 2400 IU, EVERY 2 WEEKS
     Route: 042
     Dates: start: 20190605
  2. ELELYSO [Suspect]
     Active Substance: TALIGLUCERASE ALFA
     Dosage: 2400 IU, EVERY 2 WEEKS
     Route: 042
     Dates: start: 20190620, end: 20190620
  3. ELELYSO [Suspect]
     Active Substance: TALIGLUCERASE ALFA
     Dosage: 2400 IU, EVERY 2 WEEKS
     Route: 042
     Dates: start: 20190819
  4. ELELYSO [Suspect]
     Active Substance: TALIGLUCERASE ALFA
     Dosage: 2400 IU, EVERY 2 WEEKS
     Route: 042
     Dates: start: 20190902
  5. ELELYSO [Suspect]
     Active Substance: TALIGLUCERASE ALFA
     Dosage: 2400 IU, EVERY 2 WEEKS
     Route: 042
     Dates: start: 20191028
  6. ELELYSO [Suspect]
     Active Substance: TALIGLUCERASE ALFA
     Dosage: 2400 IU, EVERY 2 WEEKS
     Route: 042
     Dates: start: 20191125
  7. ELELYSO [Suspect]
     Active Substance: TALIGLUCERASE ALFA
     Dosage: 2400 IU, EVERY 2 WEEKS
     Route: 042
     Dates: start: 20191223
  8. BENADRYL [Concomitant]
     Active Substance: DIPHENHYDRAMINE HYDROCHLORIDE
     Dosage: 50 MG, UNK
     Route: 048
     Dates: start: 20181015
  9. BENADRYL [Concomitant]
     Active Substance: DIPHENHYDRAMINE HYDROCHLORIDE
     Dosage: 50 MG, UNK
     Route: 048
     Dates: start: 20190114
  10. ELELYSO [Suspect]
     Active Substance: TALIGLUCERASE ALFA
     Dosage: 2400 IU, EVERY 2 WEEKS
     Route: 042
     Dates: start: 20191111
  11. BENADRYL [Concomitant]
     Active Substance: DIPHENHYDRAMINE HYDROCHLORIDE
     Dosage: 50 MG, UNK
     Route: 048
     Dates: start: 20190102
  12. ACETAMINOPHEN. [Concomitant]
     Active Substance: ACETAMINOPHEN
     Dosage: 650 MG, AS NEEDED
     Route: 048
     Dates: start: 20180917
  13. ELELYSO [Suspect]
     Active Substance: TALIGLUCERASE ALFA
     Dosage: 2400 IU, EVERY 2 WEEKS
     Route: 042
     Dates: start: 20190114
  14. ELELYSO [Suspect]
     Active Substance: TALIGLUCERASE ALFA
     Dosage: 2400 IU, EVERY 2 WEEKS
     Route: 042
     Dates: start: 20190325
  15. ELELYSO [Suspect]
     Active Substance: TALIGLUCERASE ALFA
     Dosage: 2400 IU, EVERY 2 WEEKS
     Route: 042
     Dates: start: 20190506
  16. ELELYSO [Suspect]
     Active Substance: TALIGLUCERASE ALFA
     Dosage: 2400 IU, EVERY 2 WEEKS
     Route: 042
     Dates: start: 20190520
  17. ELELYSO [Suspect]
     Active Substance: TALIGLUCERASE ALFA
     Dosage: 2400 IU, EVERY 2 WEEKS
     Route: 042
     Dates: start: 20191014
  18. ELELYSO [Suspect]
     Active Substance: TALIGLUCERASE ALFA
     Dosage: 2400 IU, EVERY 2 WEEKS
     Route: 042
     Dates: start: 20200210
  19. ELELYSO [Suspect]
     Active Substance: TALIGLUCERASE ALFA
     Dosage: 2400 IU, EVERY 2 WEEKS
     Route: 042
     Dates: start: 20200309
  20. BENADRYL [Concomitant]
     Active Substance: DIPHENHYDRAMINE HYDROCHLORIDE
     Indication: PREMEDICATION
     Dosage: 50 MG, UNK
     Route: 048
     Dates: start: 20180917
  21. BENADRYL [Concomitant]
     Active Substance: DIPHENHYDRAMINE HYDROCHLORIDE
     Dosage: 50 MG, UNK
     Route: 048
     Dates: start: 20181217
  22. TYLENOL [Concomitant]
     Active Substance: ACETAMINOPHEN
     Dosage: 650 MG, AS NEEDED
     Route: 048
     Dates: start: 20181217
  23. TYLENOL [Concomitant]
     Active Substance: ACETAMINOPHEN
     Dosage: 500 MG, AS NEEDED
     Route: 048
     Dates: start: 20190128
  24. TYLENOL [Concomitant]
     Active Substance: ACETAMINOPHEN
     Dosage: 1000 MG, UNK
     Route: 048
     Dates: start: 20190210, end: 20190210
  25. TYLENOL [Concomitant]
     Active Substance: ACETAMINOPHEN
     Dosage: 650 MG, UNK
     Dates: start: 20191125
  26. ELELYSO [Suspect]
     Active Substance: TALIGLUCERASE ALFA
     Dosage: 2400 IU, EVERY 2 WEEKS (RATE: 80ML/HOUR)
     Route: 042
     Dates: start: 20181015
  27. ELELYSO [Suspect]
     Active Substance: TALIGLUCERASE ALFA
     Dosage: 2400 IU, EVERY 2 WEEKS
     Route: 042
     Dates: start: 20181217
  28. ELELYSO [Suspect]
     Active Substance: TALIGLUCERASE ALFA
     Dosage: 2400 IU, EVERY 2 WEEKS
     Route: 042
     Dates: start: 20190102
  29. ELELYSO [Suspect]
     Active Substance: TALIGLUCERASE ALFA
     Dosage: 2400 IU, EVERY 2 WEEKS
     Route: 042
     Dates: start: 20190225, end: 20190225
  30. ELELYSO [Suspect]
     Active Substance: TALIGLUCERASE ALFA
     Dosage: 2400 IU, EVERY 2 WEEKS
     Route: 042
     Dates: start: 20190711, end: 20190711
  31. ELELYSO [Suspect]
     Active Substance: TALIGLUCERASE ALFA
     Dosage: 2400 IU, EVERY 2 WEEKS
     Route: 042
     Dates: start: 20191209
  32. ELELYSO [Suspect]
     Active Substance: TALIGLUCERASE ALFA
     Dosage: 2400 IU, EVERY 2 WEEKS
     Route: 042
     Dates: start: 20200113
  33. BENADRYL [Concomitant]
     Active Substance: DIPHENHYDRAMINE HYDROCHLORIDE
     Dosage: 50 MG, UNK
     Route: 048
     Dates: start: 20190128
  34. TYLENOL [Concomitant]
     Active Substance: ACETAMINOPHEN
     Dosage: 650 MG, AS NEEDED
     Route: 048
     Dates: start: 20190114
  35. PANTOLOC [Concomitant]
     Active Substance: PANTOPRAZOLE SODIUM
     Dosage: 40 MG, 1X/DAY
     Route: 048
  36. ELELYSO [Suspect]
     Active Substance: TALIGLUCERASE ALFA
     Indication: THROMBOCYTOPENIA
     Dosage: 2400 IU, EVERY 2 WEEKS
     Route: 042
     Dates: start: 20180905, end: 20180905
  37. ELELYSO [Suspect]
     Active Substance: TALIGLUCERASE ALFA
     Dosage: 2500 IU, EVERY 2 WEEKS (RATE: 80ML/HOUR)
     Route: 042
  38. ELELYSO [Suspect]
     Active Substance: TALIGLUCERASE ALFA
     Dosage: 2400 IU, EVERY 2 WEEKS
     Route: 042
     Dates: start: 20190210, end: 20190210
  39. ELELYSO [Suspect]
     Active Substance: TALIGLUCERASE ALFA
     Dosage: 2400 IU, EVERY 2 WEEKS
     Route: 042
     Dates: start: 20190731
  40. ELELYSO [Suspect]
     Active Substance: TALIGLUCERASE ALFA
     Dosage: 2400 IU, EVERY 2 WEEKS
     Route: 042
     Dates: start: 20200323
  41. TYLENOL [Concomitant]
     Active Substance: ACETAMINOPHEN
     Dosage: 650 MG, AS NEEDED
     Route: 048
  42. TYLENOL [Concomitant]
     Active Substance: ACETAMINOPHEN
     Dosage: 650 MG, AS NEEDED
     Route: 048
     Dates: start: 20181119
  43. TYLENOL [Concomitant]
     Active Substance: ACETAMINOPHEN
     Dosage: 650 MG, AS NEEDED
     Route: 048
     Dates: start: 20181203
  44. ELELYSO [Suspect]
     Active Substance: TALIGLUCERASE ALFA
     Dosage: 2400 IU, EVERY 2 WEEKS RATE OF 33.3 ML/H
     Route: 042
     Dates: start: 20181002
  45. ELELYSO [Suspect]
     Active Substance: TALIGLUCERASE ALFA
     Dosage: 2400 IU, EVERY 2 WEEKS
     Route: 042
     Dates: start: 20190128, end: 20190128
  46. ELELYSO [Suspect]
     Active Substance: TALIGLUCERASE ALFA
     Dosage: 2400 IU, EVERY 2 WEEKS
     Route: 042
     Dates: start: 20190408
  47. ELELYSO [Suspect]
     Active Substance: TALIGLUCERASE ALFA
     Dosage: 2400 IU, EVERY 2 WEEKS
     Route: 042
     Dates: start: 20200224
  48. BENADRYL [Concomitant]
     Active Substance: DIPHENHYDRAMINE HYDROCHLORIDE
     Dosage: 50 MG, UNK
     Route: 048
     Dates: start: 20181105
  49. BENADRYL [Concomitant]
     Active Substance: DIPHENHYDRAMINE HYDROCHLORIDE
     Dosage: 50 MG, UNK
     Route: 048
     Dates: start: 20181203
  50. TYLENOL [Concomitant]
     Active Substance: ACETAMINOPHEN
     Indication: HEADACHE
     Dosage: 650 MG, AS NEEDED
     Route: 048
  51. ELELYSO [Suspect]
     Active Substance: TALIGLUCERASE ALFA
     Indication: GAUCHER^S DISEASE TYPE I
     Dosage: 2200 IU, EVERY 2 WEEKS
     Route: 042
     Dates: start: 20180823, end: 20180823
  52. ELELYSO [Suspect]
     Active Substance: TALIGLUCERASE ALFA
     Dosage: 2400 IU, EVERY 2 WEEKS
     Route: 042
     Dates: start: 20180917, end: 20180917
  53. ELELYSO [Suspect]
     Active Substance: TALIGLUCERASE ALFA
     Dosage: 2400 IU, EVERY 2 WEEKS
     Route: 042
     Dates: start: 20181105, end: 20181105
  54. ELELYSO [Suspect]
     Active Substance: TALIGLUCERASE ALFA
     Dosage: 2400 IU, EVERY 2 WEEKS
     Route: 042
     Dates: start: 20190422
  55. ELELYSO [Suspect]
     Active Substance: TALIGLUCERASE ALFA
     Dosage: 2400 IU, EVERY 2 WEEKS
     Route: 042
     Dates: start: 20190930
  56. TYLENOL [Concomitant]
     Active Substance: ACETAMINOPHEN
     Dosage: 650 MG, AS NEEDED
     Route: 048
     Dates: start: 20190102
  57. ELELYSO [Suspect]
     Active Substance: TALIGLUCERASE ALFA
     Dosage: 2400 IU, EVERY 2 WEEKS
     Route: 042
     Dates: start: 20181119
  58. ELELYSO [Suspect]
     Active Substance: TALIGLUCERASE ALFA
     Dosage: 2400 IU, EVERY 2 WEEKS
     Route: 042
     Dates: start: 20181203
  59. ELELYSO [Suspect]
     Active Substance: TALIGLUCERASE ALFA
     Dosage: 2400 IU, EVERY 2 WEEKS
     Route: 042
     Dates: start: 20190311
  60. ELELYSO [Suspect]
     Active Substance: TALIGLUCERASE ALFA
     Dosage: 2400 IU, EVERY 2 WEEKS
     Route: 042
     Dates: start: 20190916
  61. BENADRYL [Concomitant]
     Active Substance: DIPHENHYDRAMINE HYDROCHLORIDE
     Dosage: 50 MG, UNK
     Route: 048
     Dates: start: 20181119

REACTIONS (27)
  - Dizziness [Unknown]
  - Reticulocyte percentage increased [Unknown]
  - Blood pressure fluctuation [Not Recovered/Not Resolved]
  - Weight decreased [Not Recovered/Not Resolved]
  - Hypotension [Unknown]
  - Back pain [Recovered/Resolved]
  - Infection [Unknown]
  - Intentional product use issue [Unknown]
  - Eosinophil count decreased [Unknown]
  - Pyrexia [Not Recovered/Not Resolved]
  - Product dose omission [Unknown]
  - Respiratory rate increased [Unknown]
  - Respiratory rate decreased [Unknown]
  - Body temperature fluctuation [Not Recovered/Not Resolved]
  - Spinal pain [Recovered/Resolved]
  - Weight increased [Not Recovered/Not Resolved]
  - Headache [Unknown]
  - Thrombocytopenia [Not Recovered/Not Resolved]
  - Heart rate irregular [Not Recovered/Not Resolved]
  - Infusion site extravasation [Unknown]
  - Musculoskeletal discomfort [Not Recovered/Not Resolved]
  - Musculoskeletal chest pain [Recovered/Resolved]
  - Weight fluctuation [Not Recovered/Not Resolved]
  - Off label use [Unknown]
  - Reticulocyte count increased [Unknown]
  - Inappropriate schedule of product administration [Unknown]
  - Flushing [Not Recovered/Not Resolved]

NARRATIVE: CASE EVENT DATE: 2018
